FAERS Safety Report 7167906-4 (Version None)
Quarter: 2010Q4

REPORT INFORMATION
  Report Type: 
  Country: None (occurrence: None)
  Receive Date: 20101216
  Receipt Date: 20101203
  Transmission Date: 20110411
  Serious: No
  Sender: FDA-Public Use
  Company Number: US-PFIZER INC-2010164966

PATIENT
  Age: 40 Year
  Sex: Male
  Weight: 99.773 kg

DRUGS (2)
  1. ADVIL [Suspect]
     Dosage: 2 LIQUIGELS EVERY DAY AS NEEDED
     Route: 048
     Dates: start: 20100601, end: 20101001
  2. PRILOSEC [Concomitant]
     Indication: DYSPEPSIA

REACTIONS (5)
  - OEDEMA PERIPHERAL [None]
  - PAIN OF SKIN [None]
  - PRURITUS [None]
  - RASH [None]
  - SCAR [None]
